FAERS Safety Report 8384253 (Version 3)
Quarter: 2013Q3

REPORT INFORMATION
  Report Type: Spontaneous
  Country: US (occurrence: US)
  Receive Date: 20120202
  Receipt Date: 20130917
  Transmission Date: 20140515
  Serious: Yes (Death, Hospitalization, Other)
  Sender: FDA-Public Use
  Company Number: US-PFIZER INC-2012024760

PATIENT
  Age: 40 Year
  Sex: Male

DRUGS (10)
  1. DILANTIN [Suspect]
     Indication: CONVULSION
     Dosage: 200 MG (TWO CAPSULES), 2X/DAY
     Route: 048
     Dates: start: 20090215, end: 20090224
  2. DECADRON [Concomitant]
     Dosage: 4 MG, 2X/DAY ( EVERY 12 HOURS)
     Route: 048
     Dates: start: 20090215
  3. COLACE [Concomitant]
     Indication: CONSTIPATION
     Dosage: 100 MG, 2X/DAY
     Route: 048
     Dates: start: 20090215
  4. GABAPENTIN [Concomitant]
     Dosage: 300 MG, 3X/DAY
     Route: 048
     Dates: start: 20090215
  5. IBUPROFEN [Concomitant]
     Dosage: 800 MG, 3X/DAY
     Route: 048
     Dates: start: 20090215
  6. ATIVAN [Concomitant]
     Indication: ANXIETY
     Dosage: 1 MG, 3X/DAY
     Route: 048
     Dates: start: 20090217
  7. OXYCONTIN [Concomitant]
     Dosage: 10 MG, 2X/DAY
     Route: 048
     Dates: start: 20090215
  8. LEVOFLOXACIN [Concomitant]
     Dosage: 500 MG, 1X/DAY
     Route: 048
     Dates: start: 20090215
  9. GUAIFENESIN [Concomitant]
     Dosage: 10 ML, EVERY 4 HRS
     Route: 048
     Dates: start: 20090215
  10. TYLENOL [Concomitant]
     Dosage: 1000 MG, 3X/DAY (EVERY 8 HOURS)
     Route: 048
     Dates: start: 20090215

REACTIONS (2)
  - Stevens-Johnson syndrome [Fatal]
  - Toxic epidermal necrolysis [Fatal]
